FAERS Safety Report 4733273-6 (Version None)
Quarter: 2005Q3

REPORT INFORMATION
  Report Type: 
  Country: None (occurrence: None)
  Receive Date: 20050803
  Receipt Date: 20050726
  Transmission Date: 20060218
  Serious: Yes (Hospitalization)
  Sender: FDA-Public Use
  Company Number: US-BRISTOL-MYERS SQUIBB COMPANY-13052055

PATIENT
  Age: 81 Year
  Sex: Male
  Weight: 82 kg

DRUGS (10)
  1. COUMADIN [Suspect]
     Indication: ATRIAL FIBRILLATION
     Dosage: 2 MG TABLETS, 1.5 TABLETS PER DAY
     Dates: start: 20030901
  2. ADVAIR DISKUS 100/50 [Concomitant]
     Dosage: 250/50MG
     Route: 055
  3. ALPHAGAN [Concomitant]
  4. AZOPT [Concomitant]
     Dosage: 1 GTT BID OU
  5. CATAPRES [Concomitant]
  6. LASIX [Concomitant]
  7. PROTONIX [Concomitant]
  8. SODIUM BICARBONATE [Concomitant]
     Dosage: 650 MG, 2 TABLETS, TID
  9. TRANSDERM-NITRO PATCH [Concomitant]
     Route: 062
  10. VITRON-C [Concomitant]

REACTIONS (2)
  - INTRA-ABDOMINAL HAEMORRHAGE [None]
  - PULMONARY OEDEMA [None]
